FAERS Safety Report 7474444-8 (Version None)
Quarter: 2011Q2

REPORT INFORMATION
  Report Type: 
  Country: None (occurrence: None)
  Receive Date: 20110512
  Receipt Date: 20110214
  Transmission Date: 20111010
  Serious: No
  Sender: FDA-Public Use
  Company Number: US-BAYER-2011-015389

PATIENT
  Age: 67 Year
  Sex: Male

DRUGS (4)
  1. VYTORIN [Concomitant]
  2. AVELOX [Suspect]
     Indication: INFECTION
     Dosage: 400 MG, QD
     Route: 048
     Dates: start: 20101214, end: 20101215
  3. ADRENNOX [Concomitant]
  4. MOTRIN [Concomitant]

REACTIONS (2)
  - VOMITING [None]
  - DIARRHOEA [None]
